FAERS Safety Report 7369983-4 (Version None)
Quarter: 2011Q1

REPORT INFORMATION
  Report Type: 
  Country: None (occurrence: None)
  Receive Date: 20110323
  Receipt Date: 20110309
  Transmission Date: 20110831
  Serious: Yes (Other)
  Sender: FDA-Public Use
  Company Number: PHHY2011US16906

PATIENT
  Sex: Female

DRUGS (4)
  1. VERAPAMIL [Concomitant]
     Dosage: 240 MG, BID
  2. PRILOSEC [Concomitant]
     Dosage: 1 DF, QD
  3. LASIX [Concomitant]
     Dosage: 20 MG, QOD
  4. TEKTURNA [Suspect]
     Dosage: 150 MG, QD

REACTIONS (5)
  - MALAISE [None]
  - PNEUMONIA [None]
  - HEART RATE INCREASED [None]
  - NAUSEA [None]
  - SOMNOLENCE [None]
